FAERS Safety Report 20855418 (Version 1)
Quarter: 2022Q2

REPORT INFORMATION
  Report Type: Report from Study
  Country: CR (occurrence: None)
  Receive Date: 20220520
  Receipt Date: 20220520
  Transmission Date: 20220720
  Serious: Yes (Death, Hospitalization, Other)
  Sender: FDA-Public Use
  Company Number: 2022A192244

PATIENT
  Age: 34063 Day
  Sex: Female

DRUGS (3)
  1. CANDESARTAN CILEXETIL\HYDROCHLOROTHIAZIDE [Suspect]
     Active Substance: CANDESARTAN CILEXETIL\HYDROCHLOROTHIAZIDE
     Indication: Arrhythmia
     Route: 048
     Dates: start: 20200424, end: 20220424
  2. CANDESARTAN CILEXETIL\HYDROCHLOROTHIAZIDE [Suspect]
     Active Substance: CANDESARTAN CILEXETIL\HYDROCHLOROTHIAZIDE
     Indication: Hypertension
     Route: 048
     Dates: start: 20200424, end: 20220424
  3. NEXIUM [Suspect]
     Active Substance: ESOMEPRAZOLE MAGNESIUM
     Indication: Gastric disorder
     Route: 048

REACTIONS (10)
  - Death [Fatal]
  - Choking sensation [Unknown]
  - COVID-19 [Unknown]
  - Suffocation feeling [Unknown]
  - Loss of consciousness [Unknown]
  - Asthenia [Unknown]
  - Skin ulcer [Unknown]
  - Hypophagia [Unknown]
  - Vomiting [Unknown]
  - Off label use [Unknown]

NARRATIVE: CASE EVENT DATE: 20220421
